FAERS Safety Report 8999467 (Version 2)
Quarter: 2013Q1

REPORT INFORMATION
  Report Type: Spontaneous
  Country: PE (occurrence: PE)
  Receive Date: 20130103
  Receipt Date: 20130109
  Transmission Date: 20140127
  Serious: Yes (Death)
  Sender: FDA-Public Use
  Company Number: PE-GLAXOSMITHKLINE-A1006787A

PATIENT
  Age: 84 Year
  Sex: Female

DRUGS (1)
  1. SERETIDE [Suspect]
     Indication: CHRONIC OBSTRUCTIVE PULMONARY DISEASE
     Dosage: 2PUFF PER DAY
     Route: 065
     Dates: start: 20120318

REACTIONS (1)
  - Death [Fatal]
